FAERS Safety Report 7124209-1 (Version None)
Quarter: 2010Q4

REPORT INFORMATION
  Report Type: 
  Country: None (occurrence: None)
  Receive Date: 20101126
  Receipt Date: 20101118
  Transmission Date: 20110411
  Serious: Yes (Other)
  Sender: FDA-Public Use
  Company Number: PHHY2010CA78739

PATIENT
  Sex: Male
  Weight: 81.8 kg

DRUGS (2)
  1. EXTAVIA [Suspect]
     Dosage: 2 MIU, QOD
     Route: 058
     Dates: start: 20101117
  2. VITAMIN D [Concomitant]
     Dosage: UNK

REACTIONS (7)
  - ARTHRALGIA [None]
  - BACK PAIN [None]
  - HEADACHE [None]
  - MUSCLE SPASMS [None]
  - MYALGIA [None]
  - PAIN IN EXTREMITY [None]
  - PARAESTHESIA [None]
